FAERS Safety Report 8806246 (Version 1)
Quarter: 2012Q4

REPORT INFORMATION
  Report Type: 
  Country: AR (occurrence: AR)
  Receive Date: 20120925
  Receipt Date: 20120925
  Transmission Date: 20130627
  Serious: Yes (Hospitalization)
  Sender: FDA-Public Use
  Company Number: PHHY2012AR082637

PATIENT
  Sex: Male

DRUGS (1)
  1. DIOVAN D [Suspect]
     Indication: HYPERTENSION
     Dosage: 1 DF (160 mg vals and 25 mg hydro), daily
     Dates: start: 2005

REACTIONS (4)
  - Cerebrovascular accident [Recovering/Resolving]
  - Motor dysfunction [Recovering/Resolving]
  - Syncope [Recovering/Resolving]
  - Feeling abnormal [Recovering/Resolving]
